FAERS Safety Report 24078105 (Version 2)
Quarter: 2024Q3

REPORT INFORMATION
  Report Type: Report from Study
  Country: DE (occurrence: DE)
  Receive Date: 20240711
  Receipt Date: 20240831
  Transmission Date: 20241016
  Serious: Yes (Other)
  Sender: TEVA
  Company Number: DE-TEVA-VS-3217609

PATIENT
  Age: 54 Year
  Sex: Female
  Weight: 61 kg

DRUGS (1)
  1. COPAXONE [Suspect]
     Active Substance: GLATIRAMER ACETATE
     Indication: Multiple sclerosis
     Dosage: DOSAGE: 40 MG/ML
     Route: 058
     Dates: start: 201801

REACTIONS (12)
  - Hypothermia [Recovered/Resolved]
  - Hypersensitivity [Unknown]
  - Injection site discolouration [Unknown]
  - Sleep disorder [Unknown]
  - Injection site swelling [Unknown]
  - Cellulitis [Unknown]
  - Injection site pruritus [Unknown]
  - Chills [Unknown]
  - Nausea [Recovered/Resolved]
  - Hangover [Recovered/Resolved]
  - Injection site warmth [Unknown]
  - Immediate post-injection reaction [Unknown]

NARRATIVE: CASE EVENT DATE: 20220101
